FAERS Safety Report 8097135-1 (Version None)
Quarter: 2012Q1

REPORT INFORMATION
  Report Type: 
  Country: None (occurrence: None)
  Receive Date: 20120129
  Receipt Date: 20111118
  Transmission Date: 20120608
  Serious: No
  Sender: FDA-Public Use
  Company Number: US-ABBOTT-11P-163-0876452-00

PATIENT
  Age: 42 Year
  Sex: Female

DRUGS (8)
  1. HUMIRA [Suspect]
     Indication: PSORIATIC ARTHROPATHY
     Dates: start: 20110826
  2. DETROL LA [Concomitant]
     Indication: BLADDER DISORDER
  3. TOPAMAX [Concomitant]
     Indication: NEUROPATHY PERIPHERAL
  4. FOBIC [Concomitant]
     Indication: PSORIATIC ARTHROPATHY
     Dates: start: 20080101
  5. METHOTREXATE [Concomitant]
     Indication: PSORIATIC ARTHROPATHY
     Dates: start: 20080101
  6. GABAPENTIN [Concomitant]
     Indication: NEUROPATHY PERIPHERAL
  7. NAPROXEN (ALEVE) [Concomitant]
     Indication: PAIN
  8. WOMENS MULTIVITAMIN-IRON FREE [Concomitant]
     Indication: PRODUCT USED FOR UNKNOWN INDICATION

REACTIONS (2)
  - RASH MACULAR [None]
  - SKIN DISCOLOURATION [None]
